APPROVED DRUG PRODUCT: REVUFORJ
Active Ingredient: REVUMENIB CITRATE
Strength: EQ 160MG BASE
Dosage Form/Route: TABLET;ORAL
Application: N218944 | Product #003
Applicant: SYNDAX PHARMACEUTICALS INC
Approved: Nov 15, 2024 | RLD: Yes | RS: Yes | Type: RX

PATENTS:
Patent 11479557 | Expires: Jun 8, 2037
Patent 11479557 | Expires: Jun 8, 2037
Patent 10683302 | Expires: Jun 8, 2037

EXCLUSIVITY:
Code: NCE | Date: Nov 15, 2029
Code: ODE-502 | Date: Nov 15, 2031
Code: ODE-504 | Date: Nov 15, 2031
Code: ODE-505 | Date: Nov 15, 2031